FAERS Safety Report 6793444-4 (Version None)
Quarter: 2010Q2

REPORT INFORMATION
  Report Type: 
  Country: None (occurrence: None)
  Receive Date: 20100624
  Receipt Date: 20100312
  Transmission Date: 20101027
  Serious: Yes (Death)
  Sender: FDA-Public Use
  Company Number: US-MYLANLABS-2010S1004205

PATIENT
  Age: 52 Year
  Sex: Male

DRUGS (18)
  1. CLOZAPINE [Suspect]
     Indication: SCHIZOPHRENIA
     Route: 048
  2. BUPROPION HYDROCHLORIDE EXTENDED-RELEASE TABLETS [Concomitant]
     Route: 048
  3. NASACORT AQ [Concomitant]
     Dosage: 1 SPRAY EACH NOSTRIL
     Route: 045
  4. OXYBUTYNIN CHLORIDE [Concomitant]
     Route: 048
  5. POLYETHYLENE GLYCOL [Concomitant]
     Route: 048
  6. TRICOR [Concomitant]
     Route: 048
  7. NORMAL SALINE [Concomitant]
     Route: 045
  8. DOCUSATE [Concomitant]
     Route: 048
  9. RANITIDINE [Concomitant]
     Route: 048
  10. AKWA-TEARS [Concomitant]
     Route: 031
  11. PERPHENAZINE [Concomitant]
     Route: 048
  12. TRIHEXYPHENIDYL HCL [Concomitant]
     Route: 048
  13. LORAZEPAM [Concomitant]
     Route: 048
  14. SENNA [Concomitant]
     Route: 048
  15. ACETAMINOPHEN [Concomitant]
     Indication: BODY TEMPERATURE INCREASED
     Route: 048
  16. GENASYME [Concomitant]
     Indication: DYSPEPSIA
     Route: 048
  17. MILK OF MAGNESIUM [Concomitant]
     Indication: CONSTIPATION
     Route: 048
  18. MINTOX [Concomitant]
     Route: 048

REACTIONS (1)
  - MYOCARDIAL INFARCTION [None]
